FAERS Safety Report 7756597 (Version 3)
Quarter: 2012Q4

REPORT INFORMATION
  Report Type: 
  Country: US (occurrence: US)
  Receive Date: 20110112
  Receipt Date: 20120921
  Transmission Date: 20130627
  Serious: Yes (Other)
  Sender: FDA-Public Use
  Company Number: US-PFIZER INC-2011004691

PATIENT
  Sex: Male

DRUGS (2)
  1. VIAGRA [Suspect]
     Indication: ERECTILE DYSFUNCTION
     Dosage: 25 mg every two or three days
     Route: 048
     Dates: start: 201103, end: 20110315
  2. VIAGRA [Suspect]
     Dosage: 100 mg over 4 hours

REACTIONS (3)
  - Vision blurred [Recovering/Resolving]
  - Testicular disorder [Unknown]
  - Drug ineffective [Unknown]
